FAERS Safety Report 17882704 (Version 5)
Quarter: 2021Q1

REPORT INFORMATION
  Report Type: Spontaneous
  Country: US (occurrence: US)
  Receive Date: 20200610
  Receipt Date: 20210325
  Transmission Date: 20210419
  Serious: Yes (Congenital Anomaly, Other)
  Sender: FDA-Public Use
  Company Number: NVSC2020US161409

PATIENT
  Sex: Female

DRUGS (2)
  1. ZOFRAN [Suspect]
     Active Substance: ONDANSETRON HYDROCHLORIDE
     Indication: FOETAL EXPOSURE DURING PREGNANCY
     Dosage: MOTHER DOSE: 2 MG, PRN
     Route: 064
  2. ZOFRAN [Suspect]
     Active Substance: ONDANSETRON HYDROCHLORIDE
     Indication: FOETAL EXPOSURE DURING PREGNANCY
     Dosage: MOTHER DOSE: 8 MG, BID
     Route: 064

REACTIONS (36)
  - Injury [Unknown]
  - Contusion [Unknown]
  - Acne [Unknown]
  - Breast mass [Unknown]
  - Iron deficiency anaemia [Unknown]
  - Otitis externa [Unknown]
  - Myopia [Unknown]
  - Fatigue [Unknown]
  - Corneal abrasion [Unknown]
  - Sneezing [Unknown]
  - Nasopharyngitis [Unknown]
  - Nasal congestion [Unknown]
  - Dehydration [Unknown]
  - Menorrhagia [Unknown]
  - Suicide attempt [Unknown]
  - Nausea [Unknown]
  - Head injury [Unknown]
  - Dizziness [Unknown]
  - Ecchymosis [Unknown]
  - Pain in extremity [Unknown]
  - Rhinorrhoea [Unknown]
  - Ear pain [Unknown]
  - Headache [Unknown]
  - Vomiting [Unknown]
  - Abdominal pain lower [Unknown]
  - Pyrexia [Unknown]
  - Otitis media [Unknown]
  - Cleft palate [Unknown]
  - Foetal exposure during pregnancy [Unknown]
  - Visual impairment [Unknown]
  - Refractive amblyopia [Unknown]
  - Ear infection [Unknown]
  - Influenza [Unknown]
  - Hidradenitis [Unknown]
  - Inadequate diet [Unknown]
  - Astigmatism [Unknown]
